FAERS Safety Report 14961611 (Version 1)
Quarter: 2018Q2

REPORT INFORMATION
  Report Type: Spontaneous
  Country: DE (occurrence: DE)
  Receive Date: 20180601
  Receipt Date: 20180601
  Transmission Date: 20180711
  Serious: Yes (Hospitalization)
  Sender: FDA-Public Use
  Company Number: DE-WEST-WARD PHARMACEUTICALS CORP.-DE-H14001-18-04416

PATIENT
  Age: 57 Year
  Sex: Female
  Weight: 66 kg

DRUGS (8)
  1. PACLITAXEL. [Suspect]
     Active Substance: PACLITAXEL
     Indication: BREAST CANCER
     Dosage: DAILY DOSE: 311.5 MG MILLGRAM(S) EVERY 3 WEEKS
     Route: 042
     Dates: start: 20150303
  2. CAPECITABINE. [Concomitant]
     Active Substance: CAPECITABINE
     Indication: BREAST CANCER
     Dosage: FROM D1-D14 OF EACH CYCLE
     Route: 048
     Dates: start: 20150407, end: 20150420
  3. PACLITAXEL. [Suspect]
     Active Substance: PACLITAXEL
     Dosage: DAILY DOSE: 311.5 MG MILLGRAM(S) EVERY 3 WEEKS
     Route: 042
     Dates: start: 20150324
  4. CAPECITABINE. [Concomitant]
     Active Substance: CAPECITABINE
     Dosage: DAILY DOSE: 2000 MG MILLGRAM(S) EVERY 3 WEEKS
     Route: 048
     Dates: start: 20150428, end: 20150511
  5. AMLODIPINE [Concomitant]
     Active Substance: AMLODIPINE BESYLATE
     Indication: HYPERTENSION
     Dosage: DAILY DOSE: 5 MG MILLGRAM(S) EVERY DAYS
     Route: 048
     Dates: start: 20150122
  6. RAMIPRIL. [Concomitant]
     Active Substance: RAMIPRIL
     Indication: HYPERTENSION
     Dosage: DAILY DOSE: 5 MG MILLGRAM(S) EVERY DAYS
     Route: 048
     Dates: start: 20150122
  7. L-THYROXIN [Concomitant]
     Active Substance: LEVOTHYROXINE SODIUM
     Indication: THYROID DISORDER
     Dosage: DAILY DOSE: 125 ?G MICROGRAM(S) EVERY DAYS
     Route: 048
  8. AVASTIN [Suspect]
     Active Substance: BEVACIZUMAB
     Indication: BREAST CANCER
     Dosage: DATE OF LAST DOSE PRIOR TO SAE: 05/MAY/2015
     Route: 042
     Dates: start: 20150303

REACTIONS (7)
  - Drug intolerance [Recovered/Resolved]
  - Metastases to skin [Recovered/Resolved]
  - General physical health deterioration [Recovered/Resolved]
  - Arrhythmia [Recovered/Resolved]
  - Hydronephrosis [Recovered/Resolved]
  - Pseudocyst [Recovered/Resolved]
  - Ureteric stenosis [Recovered/Resolved]

NARRATIVE: CASE EVENT DATE: 20150304
